FAERS Safety Report 18251244 (Version 1)
Quarter: 2020Q3

REPORT INFORMATION
  Report Type: Other
  Country: ES (occurrence: ES)
  Receive Date: 20200910
  Receipt Date: 20200910
  Transmission Date: 20201103
  Serious: Yes (Hospitalization, Other)
  Sender: FDA-Public Use
  Company Number: ES-INNOGENIX, LLC-2089578

PATIENT
  Age: 66 Year
  Sex: Female

DRUGS (1)
  1. METRONIDAZOLE. [Suspect]
     Active Substance: METRONIDAZOLE
     Indication: DEVICE RELATED INFECTION
     Route: 065

REACTIONS (2)
  - Neurotoxicity [Recovered/Resolved]
  - Peripheral sensory neuropathy [Recovered/Resolved]
